FAERS Safety Report 7244493-3 (Version None)
Quarter: 2011Q1

REPORT INFORMATION
  Report Type: 
  Country: None (occurrence: None)
  Receive Date: 20110125
  Receipt Date: 20110120
  Transmission Date: 20110831
  Serious: Yes (Life-Threatening)
  Sender: FDA-Public Use
  Company Number: ZA-GILEAD-2011-0035552

PATIENT
  Sex: Male
  Weight: 68.5 kg

DRUGS (3)
  1. NEVIRAPINE [Suspect]
     Dates: start: 20081015, end: 20081023
  2. NEVIRAPINE [Suspect]
     Indication: HIV INFECTION
     Dates: start: 20081015, end: 20081023
  3. TRUVADA [Suspect]
     Indication: HIV INFECTION
     Route: 048
     Dates: start: 20081001, end: 20081023

REACTIONS (4)
  - ASPARTATE AMINOTRANSFERASE INCREASED [None]
  - GAMMA-GLUTAMYLTRANSFERASE INCREASED [None]
  - BLOOD BILIRUBIN INCREASED [None]
  - ALANINE AMINOTRANSFERASE INCREASED [None]
